FAERS Safety Report 17862095 (Version 1)
Quarter: 2020Q2

REPORT INFORMATION
  Report Type: Spontaneous
  Country: FR (occurrence: FR)
  Receive Date: 20200604
  Receipt Date: 20200604
  Transmission Date: 20200714
  Serious: Yes (Life-Threatening)
  Sender: FDA-Public Use
  Company Number: FR-MYLANLABS-2020M1053962

PATIENT
  Age: 18 Year
  Sex: Male
  Weight: 77 kg

DRUGS (3)
  1. TAZOBACTAM [Concomitant]
     Active Substance: TAZOBACTAM
     Dosage: NON ADMINISTRE
  2. PIPERACILLINE                      /00502401/ [Concomitant]
     Active Substance: PIPERACILLIN
     Dosage: NON ADMINISTRE
  3. MIDAZOLAM. [Suspect]
     Active Substance: MIDAZOLAM
     Indication: PRODUCT USED FOR UNKNOWN INDICATION
     Dosage: 80 MILLIGRAM SUR 4 HEURES
     Route: 042
     Dates: start: 20200404, end: 20200404

REACTIONS (3)
  - Disturbance in attention [Recovered/Resolved]
  - Respiratory distress [Recovered/Resolved]
  - Product administration error [Unknown]

NARRATIVE: CASE EVENT DATE: 20200404
